FAERS Safety Report 6853916-0 (Version None)
Quarter: 2010Q3

REPORT INFORMATION
  Report Type: 
  Country: None (occurrence: None)
  Receive Date: 20100717
  Receipt Date: 20071218
  Transmission Date: 20110219
  Serious: No
  Sender: FDA-Public Use
  Company Number: US-PFIZER INC-2007108049

PATIENT
  Sex: Female
  Weight: 56.7 kg

DRUGS (17)
  1. CHANTIX [Suspect]
     Indication: SMOKING CESSATION THERAPY
     Dates: start: 20071101
  2. LOVASTATIN [Concomitant]
  3. PREDNISONE [Concomitant]
  4. TRAZODONE HYDROCHLORIDE [Concomitant]
  5. ATENOLOL [Concomitant]
  6. FOLIC ACID [Concomitant]
  7. LASIX [Concomitant]
  8. LORAZEPAM [Concomitant]
  9. DARVOCET [Concomitant]
  10. GEMFIBROZIL [Concomitant]
  11. MAGNESIUM [Concomitant]
  12. POTASSIUM CHLORIDE [Concomitant]
  13. MOBIC [Concomitant]
  14. ACETYLSALICYLIC ACID [Concomitant]
  15. EPHEDRINE [Concomitant]
     Indication: HEADACHE
  16. CYCLOBENZAPRINE [Concomitant]
  17. VITAMINS [Concomitant]

REACTIONS (5)
  - FLATULENCE [None]
  - INSOMNIA [None]
  - NAUSEA [None]
  - RETCHING [None]
  - VOMITING [None]
